FAERS Safety Report 8353099-4 (Version None)
Quarter: 2012Q2

REPORT INFORMATION
  Report Type: 
  Country: None (occurrence: None)
  Receive Date: 20120511
  Receipt Date: 20120501
  Transmission Date: 20120825
  Serious: No
  Sender: FDA-Public Use
  Company Number: US-BAYER-2012-045381

PATIENT
  Age: 82 Year
  Sex: Male
  Weight: 63 kg

DRUGS (4)
  1. ASPIRIN [Concomitant]
     Indication: ANALGESIC THERAPY
  2. NAPROXEN SODIUM [Suspect]
     Indication: ANALGESIC THERAPY
     Dosage: 1 DF, BID
     Route: 048
     Dates: start: 20120424
  3. MULTI-VITAMINS [Concomitant]
  4. TOPROL-XL [Concomitant]

REACTIONS (1)
  - DIARRHOEA [None]
